FAERS Safety Report 5080850-1 (Version None)
Quarter: 2006Q3

REPORT INFORMATION
  Report Type: 
  Country: None (occurrence: None)
  Receive Date: 20060811
  Receipt Date: 20060731
  Transmission Date: 20061208
  Serious: Yes (Other)
  Sender: FDA-Public Use
  Company Number: 2006081798

PATIENT
  Sex: Female

DRUGS (2)
  1. SUTENT [Suspect]
     Indication: RENAL CELL CARCINOMA STAGE UNSPECIFIED
     Dosage: 37.5 MG (37.5 MG, 1 IN 1 D), ORAL
     Route: 048
  2. ANTITHROMBOTIC AGENTS (ANITHROMBOTIC AGENTS) [Concomitant]
     Indication: ACUTE MYOCARDIAL INFARCTION

REACTIONS (3)
  - GASTROINTESTINAL HAEMORRHAGE [None]
  - MYOCARDIAL INFARCTION [None]
  - PNEUMONIA [None]
